FAERS Safety Report 18505283 (Version 5)
Quarter: 2021Q2

REPORT INFORMATION
  Report Type: Spontaneous
  Country: JP (occurrence: JP)
  Receive Date: 20201116
  Receipt Date: 20210422
  Transmission Date: 20210717
  Serious: Yes (Other)
  Sender: FDA-Public Use
  Company Number: JP-BIOVITRUM-2020JP5598

PATIENT
  Age: 5 Month
  Sex: Male

DRUGS (21)
  1. URALYT U [Concomitant]
     Route: 048
  2. ALFAROL [Concomitant]
     Active Substance: ALFACALCIDOL
     Route: 048
  3. MONILAC [Concomitant]
     Active Substance: LACTULOSE
  4. CELLCEPT [Concomitant]
     Active Substance: MYCOPHENOLATE MOFETIL\MYCOPHENOLATE MOFETIL HYDROCHLORIDE
     Route: 048
     Dates: start: 20200927
  5. NITISINONE [Suspect]
     Active Substance: NITISINONE
     Route: 050
     Dates: start: 20201007, end: 20201019
  6. NITISINONE [Suspect]
     Active Substance: NITISINONE
     Route: 050
     Dates: start: 20201119, end: 20201201
  7. VOLVIX [Concomitant]
  8. ARGININE [Concomitant]
     Active Substance: ARGININE
  9. NITISINONE [Suspect]
     Active Substance: NITISINONE
     Route: 050
     Dates: start: 20201020, end: 20201109
  10. PREDNISOLONE. [Concomitant]
     Active Substance: PREDNISOLONE
     Route: 048
     Dates: start: 20201002, end: 20210212
  11. INTRALIPOS [Concomitant]
     Active Substance: SOYBEAN OIL
  12. LEVOCARNITINE. [Concomitant]
     Active Substance: LEVOCARNITINE
  13. URSODEOXYCHOLIC ACID [Concomitant]
     Active Substance: URSODIOL
  14. SODIUM BENZOATE [Concomitant]
     Active Substance: SODIUM BENZOATE
  15. NITISINONE [Suspect]
     Active Substance: NITISINONE
     Indication: TYROSINAEMIA
     Route: 050
     Dates: start: 20200917, end: 20201006
  16. FENTANYL. [Concomitant]
     Active Substance: FENTANYL
  17. NAFAMOSTAT [Concomitant]
     Active Substance: NAFAMOSTAT
  18. PROGRAF [Concomitant]
     Active Substance: TACROLIMUS
     Dates: start: 20200924
  19. MIDAZOLAM. [Concomitant]
     Active Substance: MIDAZOLAM
  20. OMEPRAZOLE. [Concomitant]
     Active Substance: OMEPRAZOLE
  21. GASMOTIN [Concomitant]
     Active Substance: MOSAPRIDE CITRATE

REACTIONS (7)
  - Liver transplant [Recovered/Resolved]
  - Wrong technique in product usage process [Not Recovered/Not Resolved]
  - Amino acid level increased [Unknown]
  - Off label use [Not Recovered/Not Resolved]
  - Product use issue [Not Recovered/Not Resolved]
  - Hypothyroidism [Unknown]
  - Bacterial infection [Recovered/Resolved]

NARRATIVE: CASE EVENT DATE: 20200917
